FAERS Safety Report 16466268 (Version 1)
Quarter: 2019Q2

REPORT INFORMATION
  Report Type: Other
  Country: FR (occurrence: FR)
  Receive Date: 20190622
  Receipt Date: 20190622
  Transmission Date: 20190711
  Serious: Yes (Hospitalization, Other)
  Sender: FDA-Public Use
  Company Number: FR-AJANTA PHARMA USA INC.-2069493

PATIENT
  Age: 21 Month
  Sex: Male

DRUGS (1)
  1. CLONIDINE (ANDA 209686) [Suspect]
     Active Substance: CLONIDINE
     Route: 042

REACTIONS (7)
  - Dyspnoea [Recovered/Resolved]
  - Miosis [Recovered/Resolved]
  - Product preparation issue [Recovered/Resolved]
  - Incorrect route of product administration [Recovered/Resolved]
  - Hypotension [Recovered/Resolved]
  - Somnolence [Recovered/Resolved]
  - Hypertension [Recovered/Resolved]
